FAERS Safety Report 7785702-1 (Version None)
Quarter: 2011Q3

REPORT INFORMATION
  Report Type: 
  Country: None (occurrence: None)
  Receive Date: 20110929
  Receipt Date: 20110921
  Transmission Date: 20111222
  Serious: Yes (Hospitalization, Other)
  Sender: FDA-Public Use
  Company Number: FR-UCBSA-014144

PATIENT
  Age: 4 Year
  Sex: Female

DRUGS (1)
  1. KEPPRA [Suspect]
     Indication: EPILEPSY
     Route: 048
     Dates: start: 20100616, end: 20100101

REACTIONS (8)
  - PALLOR [None]
  - RESPIRATORY DISORDER [None]
  - DRUG INTOLERANCE [None]
  - DRUG INEFFECTIVE [None]
  - CYANOSIS [None]
  - SYNCOPE [None]
  - HYPOTONIA [None]
  - SOMNOLENCE [None]
